FAERS Safety Report 12454756 (Version 1)
Quarter: 2016Q2

REPORT INFORMATION
  Report Type: Spontaneous
  Country: TR (occurrence: TR)
  Receive Date: 20160610
  Receipt Date: 20160610
  Transmission Date: 20160815
  Serious: Yes (Hospitalization, Other)
  Sender: FDA-Public Use
  Company Number: TR-SUN PHARMACEUTICAL INDUSTRIES LTD-2016RR-118218

PATIENT
  Age: 34 Year
  Sex: Female

DRUGS (3)
  1. PARACETAMOL/ PHENYLEPHRINE/ CHLORPHENIRAMINE [Suspect]
     Active Substance: ACETAMINOPHEN\CHLORPHENIRAMINE MALEATE\PHENYLEPHRINE HYDROCHLORIDE
     Indication: UPPER RESPIRATORY TRACT INFECTION
     Dosage: UNK
     Route: 048
  2. CLARITHROMYCIN. [Suspect]
     Active Substance: CLARITHROMYCIN
     Indication: UPPER RESPIRATORY TRACT INFECTION
     Dosage: 500 MG, UNK
     Route: 048
  3. BUTAMIRATE CITRATE [Concomitant]
     Active Substance: BUTAMIRATE CITRATE
     Indication: UPPER RESPIRATORY TRACT INFECTION
     Dosage: 50 MG, UNK
     Route: 065

REACTIONS (5)
  - Drug interaction [Recovered/Resolved]
  - Insomnia [None]
  - Psychotic behaviour [Recovered/Resolved]
  - Anxiety [None]
  - Disorganised speech [None]
